FAERS Safety Report 23500477 (Version 1)
Quarter: 2024Q1

REPORT INFORMATION
  Report Type: Spontaneous
  Country: BE (occurrence: BE)
  Receive Date: 20240208
  Receipt Date: 20240208
  Transmission Date: 20240410
  Serious: Yes (Disabling)
  Sender: FDA-Public Use
  Company Number: None

PATIENT
  Age: 21 Year
  Sex: Female
  Weight: 70 kg

DRUGS (2)
  1. LORATADINE\PSEUDOEPHEDRINE SULFATE [Suspect]
     Active Substance: LORATADINE\PSEUDOEPHEDRINE SULFATE
     Indication: Sinusitis
     Dosage: 1 DF, QD AFTER BREAKFAST
     Route: 048
     Dates: start: 20240119, end: 20240119
  2. LORATADINE\PSEUDOEPHEDRINE SULFATE [Suspect]
     Active Substance: LORATADINE\PSEUDOEPHEDRINE SULFATE
     Indication: Nasal congestion

REACTIONS (7)
  - Hyperhidrosis [Recovering/Resolving]
  - Accommodation disorder [Recovering/Resolving]
  - Heart rate increased [Recovering/Resolving]
  - Headache [Recovering/Resolving]
  - Nervousness [Recovering/Resolving]
  - Insomnia [Recovering/Resolving]
  - Agitation [Recovering/Resolving]

NARRATIVE: CASE EVENT DATE: 20240119
